FAERS Safety Report 17463962 (Version 1)
Quarter: 2020Q1

REPORT INFORMATION
  Report Type: Spontaneous
  Country: US (occurrence: US)
  Receive Date: 20200226
  Receipt Date: 20200226
  Transmission Date: 20200409
  Serious: No
  Sender: FDA-Public Use
  Company Number: US-LEXICON PHARMACEUTICALS, INC-20-1606-00139

PATIENT
  Sex: Female

DRUGS (11)
  1. ESCITALOPRAM [Concomitant]
     Active Substance: ESCITALOPRAM OXALATE
  2. ONDANSETRON [Concomitant]
     Active Substance: ONDANSETRON
  3. XERMELO [Suspect]
     Active Substance: TELOTRISTAT ETHYL
     Indication: NEUROENDOCRINE TUMOUR
     Dates: start: 20190326
  4. CETIRIZINE [Concomitant]
     Active Substance: CETIRIZINE HYDROCHLORIDE
  5. MUCINEX [Concomitant]
     Active Substance: GUAIFENESIN
  6. MULTIVITAMIN [Concomitant]
     Active Substance: VITAMINS
  7. IBUPROFEN. [Concomitant]
     Active Substance: IBUPROFEN
  8. PANTOPRAZOLE [Concomitant]
     Active Substance: PANTOPRAZOLE
  9. VITAMIN D [Concomitant]
     Active Substance: VITAMIN D NOS
  10. VITAMIN B12 [Concomitant]
     Active Substance: CYANOCOBALAMIN
  11. OMEGA 3 [Concomitant]
     Active Substance: OMEGA-3 FATTY ACIDS

REACTIONS (2)
  - Inappropriate schedule of product administration [Unknown]
  - Fatigue [Unknown]
